FAERS Safety Report 19187618 (Version 1)
Quarter: 2021Q2

REPORT INFORMATION
  Report Type: Report from Study
  Country: FR (occurrence: FR)
  Receive Date: 20210427
  Receipt Date: 20210427
  Transmission Date: 20210717
  Serious: Yes (Death)
  Sender: FDA-Public Use
  Company Number: FR-ELI_LILLY_AND_COMPANY-FR202104004819

PATIENT
  Age: 97 Year
  Sex: Male
  Weight: 63 kg

DRUGS (1)
  1. BAMLANIVIMAB. [Suspect]
     Active Substance: BAMLANIVIMAB
     Indication: COVID-19
     Dosage: UNK UNK, SINGLE
     Route: 065
     Dates: start: 20210310, end: 20210310

REACTIONS (3)
  - General physical health deterioration [Fatal]
  - Localised infection [Fatal]
  - Sepsis [Fatal]
